FAERS Safety Report 6619649-0 (Version None)
Quarter: 2010Q1

REPORT INFORMATION
  Report Type: 
  Country: None (occurrence: None)
  Receive Date: 20100309
  Receipt Date: 20100309
  Transmission Date: 20100710
  Serious: Yes (Life-Threatening, Hospitalization)
  Sender: FDA-Public Use
  Company Number: US-ROXANE LABORATORIES, INC.-2010-DE-00572GD

PATIENT
  Age: 41 Year
  Sex: Male

DRUGS (2)
  1. SERTRALINE HCL [Suspect]
     Dosage: 200 MG
  2. ARIPIPRAZOLE [Suspect]

REACTIONS (27)
  - ASPARTATE AMINOTRANSFERASE INCREASED [None]
  - BLOOD CHOLESTEROL INCREASED [None]
  - BLOOD CREATINE PHOSPHOKINASE INCREASED [None]
  - BLOOD CREATINE PHOSPHOKINASE MB INCREASED [None]
  - BLOOD CREATININE INCREASED [None]
  - BLOOD PRESSURE DIASTOLIC DECREASED [None]
  - BLOOD PRESSURE INCREASED [None]
  - BLOOD TRIGLYCERIDES INCREASED [None]
  - CEREBROVASCULAR ACCIDENT [None]
  - CONFUSIONAL STATE [None]
  - DIZZINESS [None]
  - DRUG SCREEN POSITIVE [None]
  - DYSARTHRIA [None]
  - FACE OEDEMA [None]
  - FACIAL PALSY [None]
  - HAEMATOCRIT INCREASED [None]
  - HAEMOGLOBIN INCREASED [None]
  - HEMIPARESIS [None]
  - HIGH DENSITY LIPOPROTEIN DECREASED [None]
  - HYPOAESTHESIA [None]
  - HYPOTHERMIA [None]
  - LOW DENSITY LIPOPROTEIN INCREASED [None]
  - MYXOEDEMA COMA [None]
  - PARAESTHESIA [None]
  - PERIORBITAL OEDEMA [None]
  - SINUS BRADYCARDIA [None]
  - WEIGHT INCREASED [None]
